FAERS Safety Report 9314804 (Version 3)
Quarter: 2013Q2

REPORT INFORMATION
  Report Type: Spontaneous
  Country: US (occurrence: US)
  Receive Date: 20130529
  Receipt Date: 20130624
  Transmission Date: 20140414
  Serious: Yes (Hospitalization)
  Sender: FDA-Public Use
  Company Number: US-JNJFOC-20130515921

PATIENT
  Age: 51 Year
  Sex: Female
  Weight: 125.65 kg

DRUGS (13)
  1. REMICADE [Suspect]
     Indication: CROHN^S DISEASE
     Dosage: CONFLICTINGLY REPORTED AS 12-JAN-2011 AND DEC-2011
     Route: 042
     Dates: start: 20110112
  2. REMICADE [Suspect]
     Indication: CROHN^S DISEASE
     Route: 042
     Dates: start: 20110220
  3. REMICADE [Suspect]
     Indication: CROHN^S DISEASE
     Dosage: LAST INFUSION.
     Route: 042
     Dates: start: 201301, end: 201303
  4. NEXIUM [Concomitant]
     Route: 065
  5. AMITRIPTYLINE [Concomitant]
     Route: 065
  6. CYMBALTA [Concomitant]
     Route: 065
  7. ITRACONAZOLE [Concomitant]
     Route: 065
  8. MERCAPTOPURINE [Concomitant]
     Route: 065
  9. DESLORATADINE [Concomitant]
     Route: 065
  10. CHLORDIAZEPOXIDE HYDROCHLORIDE [Concomitant]
     Route: 065
  11. LASIX [Concomitant]
     Route: 065
  12. POTASSIUM CHLORIDE [Concomitant]
     Route: 065
  13. CLARINEX [Concomitant]
     Route: 065

REACTIONS (5)
  - Organising pneumonia [Recovering/Resolving]
  - Pulmonary fibrosis [Unknown]
  - Histoplasmosis [Unknown]
  - Pulmonary toxicity [Recovering/Resolving]
  - Hypokalaemia [Unknown]
